FAERS Safety Report 11038187 (Version 1)
Quarter: 2015Q2

REPORT INFORMATION
  Report Type: Spontaneous
  Country: US (occurrence: None)
  Receive Date: 20150415
  Receipt Date: 20150415
  Transmission Date: 20150821
  Serious: Yes (Hospitalization)
  Sender: FDA-Public Use
  Company Number: None

PATIENT
  Age: 55 Year
  Sex: Male
  Weight: 133.8 kg

DRUGS (1)
  1. ALEMTUZUMAB [Suspect]
     Active Substance: ALEMTUZUMAB
     Indication: TRANSPLANT
     Route: 042
     Dates: start: 20101210

REACTIONS (3)
  - Skin ulcer [None]
  - Arterial stent insertion [None]
  - Cellulitis [None]

NARRATIVE: CASE EVENT DATE: 20141222
